FAERS Safety Report 23860467 (Version 2)
Quarter: 2024Q2

REPORT INFORMATION
  Report Type: Report from Study
  Country: US (occurrence: US)
  Receive Date: 20240516
  Receipt Date: 20240609
  Transmission Date: 20240716
  Serious: Yes (Other)
  Sender: FDA-Public Use
  Company Number: US-ABBVIE-5760112

PATIENT
  Age: 65 Year
  Sex: Male

DRUGS (1)
  1. HUMIRA [Suspect]
     Active Substance: ADALIMUMAB
     Indication: Psoriasis
     Dosage: CITRATE FREE
     Route: 058
     Dates: start: 20120401, end: 20221201

REACTIONS (4)
  - Cataract [Not Recovered/Not Resolved]
  - Hepatic cancer [Recovered/Resolved]
  - Unevaluable event [Unknown]
  - Arthritis [Unknown]

NARRATIVE: CASE EVENT DATE: 20220324
